FAERS Safety Report 7966201-0 (Version None)
Quarter: 2011Q4

REPORT INFORMATION
  Report Type: 
  Country: None (occurrence: None)
  Receive Date: 20111208
  Receipt Date: 20111128
  Transmission Date: 20120403
  Serious: Yes (Other)
  Sender: FDA-Public Use
  Company Number: PHHY2010NZ56862

PATIENT
  Sex: Male

DRUGS (5)
  1. GLEEVEC [Suspect]
     Dosage: 800 MG, DAILY
     Dates: start: 20100707
  2. GLEEVEC [Suspect]
     Dosage: 300 MG, BID
     Dates: start: 20100818
  3. GLEEVEC [Suspect]
     Dosage: 400-600 MG
     Dates: end: 20110801
  4. GLEEVEC [Suspect]
     Indication: CHRONIC MYELOID LEUKAEMIA
     Dosage: 400 MG, DAILY
     Dates: start: 20091201
  5. GLEEVEC [Suspect]
     Dosage: 600 MG, DAILY
     Dates: start: 20100421

REACTIONS (1)
  - ARTHROPATHY [None]
